FAERS Safety Report 4378455-0 (Version None)
Quarter: 2004Q2

REPORT INFORMATION
  Report Type: 
  Country: None (occurrence: None)
  Receive Date: 20040609
  Receipt Date: 20040528
  Transmission Date: 20050107
  Serious: Yes (Life-Threatening, Hospitalization)
  Sender: FDA-Public Use
  Company Number: S04-USA-03032-01

PATIENT
  Age: 84 Year
  Sex: Male

DRUGS (5)
  1. NAMENDA [Suspect]
     Indication: DEMENTIA ALZHEIMER'S TYPE
     Dosage: 5 MG QD PO
     Route: 048
     Dates: start: 20040501, end: 20040520
  2. ARICEPT [Concomitant]
  3. NORVASC [Concomitant]
  4. PAXIL [Concomitant]
  5. COUMADIN [Concomitant]

REACTIONS (13)
  - ARTHRITIS BACTERIAL [None]
  - BETA HAEMOLYTIC STREPTOCOCCAL INFECTION [None]
  - CRYING [None]
  - CYSTITIS [None]
  - DYSURIA [None]
  - FALL [None]
  - LUMBAR SPINAL STENOSIS [None]
  - OEDEMA PERIPHERAL [None]
  - PAIN [None]
  - SCREAMING [None]
  - TREMOR [None]
  - URINARY INCONTINENCE [None]
  - VISUAL ACUITY REDUCED [None]
